FAERS Safety Report 26068160 (Version 1)
Quarter: 2025Q4

REPORT INFORMATION
  Report Type: Spontaneous
  Country: US (occurrence: US)
  Receive Date: 20251120
  Receipt Date: 20251120
  Transmission Date: 20260119
  Serious: Yes (Other)
  Sender: COOPERSURGICAL
  Company Number: US-COOPERSURGICAL, INC.-2025CPS007974

PATIENT
  Age: 31 Year
  Sex: Female
  Weight: 86.168 kg

DRUGS (1)
  1. PARAGARD T 380A [Suspect]
     Active Substance: COPPER
     Indication: Contraception
     Dosage: UNK
     Route: 015
     Dates: start: 20110923

REACTIONS (16)
  - Reproductive complication associated with device [Not Recovered/Not Resolved]
  - High risk pregnancy [Recovered/Resolved]
  - Unwanted pregnancy [Recovered/Resolved]
  - Device breakage [Not Recovered/Not Resolved]
  - Foreign body in urogenital tract [Not Recovered/Not Resolved]
  - Complication of device removal [Not Recovered/Not Resolved]
  - Embedded device [Not Recovered/Not Resolved]
  - Anaemia of pregnancy [Unknown]
  - Device issue [Not Recovered/Not Resolved]
  - Emotional distress [Unknown]
  - Sexual dysfunction [Unknown]
  - Muscle spasms [Unknown]
  - Pain [Unknown]
  - Dyspareunia [Unknown]
  - Pelvic pain [Recovered/Resolved]
  - Menstrual disorder [Recovered/Resolved]

NARRATIVE: CASE EVENT DATE: 20190601
